FAERS Safety Report 10953244 (Version 2)
Quarter: 2015Q2

REPORT INFORMATION
  Report Type: Spontaneous
  Country: US (occurrence: US)
  Receive Date: 20150325
  Receipt Date: 20150401
  Transmission Date: 20150821
  Serious: Yes (Hospitalization)
  Sender: FDA-Public Use
  Company Number: US-PFIZER INC-2015102428

PATIENT
  Age: 48 Year
  Sex: Male
  Weight: 86.17 kg

DRUGS (3)
  1. DEPO-TESTOSTERONE [Suspect]
     Active Substance: TESTOSTERONE CYPIONATE
     Indication: BLOOD TESTOSTERONE DECREASED
     Dosage: 2000MG/ML .4ML, Q10DAYS
     Route: 030
     Dates: start: 2008
  2. COUMADIN [Concomitant]
     Active Substance: WARFARIN SODIUM
     Dosage: 5 MG, DAILY
     Route: 048
  3. ARIMIDEX [Concomitant]
     Active Substance: ANASTROZOLE

REACTIONS (10)
  - Localised infection [Unknown]
  - Blood testosterone increased [Not Recovered/Not Resolved]
  - Fall [Unknown]
  - Dizziness [Recovering/Resolving]
  - Seizure [Unknown]
  - Fatigue [Unknown]
  - Incorrect dose administered [Unknown]
  - Emotional disorder [Unknown]
  - Laceration [Unknown]
  - Drug ineffective [Unknown]

NARRATIVE: CASE EVENT DATE: 2014
